FAERS Safety Report 6025952-8 (Version None)
Quarter: 2009Q1

REPORT INFORMATION
  Report Type: 
  Country: None (occurrence: None)
  Receive Date: 20090102
  Receipt Date: 20081230
  Transmission Date: 20090719
  Serious: Yes (Disabling)
  Sender: FDA-Public Use
  Company Number: GB-JNJFOC-20081207022

PATIENT
  Age: 43 Year
  Sex: Female

DRUGS (3)
  1. RISPERIDONE [Suspect]
     Indication: MANIA
     Route: 048
  2. DIAZEPAM [Concomitant]
     Indication: MANIA
     Route: 048
  3. ZOPLICLONE [Concomitant]
     Indication: INSOMNIA
     Route: 048

REACTIONS (3)
  - EYE SWELLING [None]
  - RASH [None]
  - SKIN IRRITATION [None]
